FAERS Safety Report 6931768-8 (Version None)
Quarter: 2010Q3

REPORT INFORMATION
  Report Type: 
  Country: None (occurrence: None)
  Receive Date: 20100819
  Receipt Date: 20100810
  Transmission Date: 20110219
  Serious: Yes (Other)
  Sender: FDA-Public Use
  Company Number: TR-JNJFOC-20100804529

PATIENT
  Age: 30 Year
  Sex: Male

DRUGS (1)
  1. DITROPAN [Suspect]
     Indication: DRUG ABUSE
     Route: 065

REACTIONS (6)
  - ANTICHOLINERGIC SYNDROME [None]
  - DRUG DEPENDENCE [None]
  - INTENTIONAL DRUG MISUSE [None]
  - INTENTIONAL OVERDOSE [None]
  - PSYCHOTIC DISORDER [None]
  - SUBSTANCE ABUSE [None]
